FAERS Safety Report 19519566 (Version 1)
Quarter: 2021Q3

REPORT INFORMATION
  Report Type: Report from Study
  Country: KW (occurrence: KW)
  Receive Date: 20210712
  Receipt Date: 20210712
  Transmission Date: 20211014
  Serious: Yes (Life-Threatening, Hospitalization)
  Sender: FDA-Public Use
  Company Number: KW-BAYER-2021-167651

PATIENT
  Sex: Male

DRUGS (2)
  1. CIPROBAY 500 MG [Suspect]
     Active Substance: CIPROFLOXACIN
     Indication: INFECTION PROPHYLAXIS
     Dosage: 500 MG, BID
     Route: 048
  2. AMIKACIN. [Suspect]
     Active Substance: AMIKACIN
     Indication: INFECTION PROPHYLAXIS
     Dosage: 1 G, ONCE
     Route: 042

REACTIONS (2)
  - Septic shock [None]
  - Sepsis [None]
